FAERS Safety Report 7229594-8 (Version None)
Quarter: 2011Q1

REPORT INFORMATION
  Report Type: 
  Country: None (occurrence: None)
  Receive Date: 20110117
  Receipt Date: 20101112
  Transmission Date: 20110831
  Serious: No
  Sender: FDA-Public Use
  Company Number: US-TYCO HEALTHCARE/MALLINCKRODT-T201002273

PATIENT
  Sex: Female

DRUGS (7)
  1. OPTIRAY 350 [Suspect]
     Indication: COMPUTERISED TOMOGRAM
     Dosage: 96 ML, SINGLE
     Route: 042
     Dates: start: 20101028, end: 20101028
  2. NEXIUM [Concomitant]
     Dosage: UNK
  3. MULTIVIT [Concomitant]
     Dosage: UNK
  4. FLAXSEED OIL [Concomitant]
     Dosage: UNK
  5. FISH OIL [Concomitant]
     Dosage: UNK
  6. FOLIC ACID [Concomitant]
     Dosage: UNK
  7. SULFASALAZINE [Concomitant]
     Dosage: UNK

REACTIONS (3)
  - ERYTHEMA [None]
  - URTICARIA [None]
  - LOCAL SWELLING [None]
